FAERS Safety Report 18358837 (Version 3)
Quarter: 2020Q4

REPORT INFORMATION
  Report Type: Spontaneous
  Country: US (occurrence: US)
  Receive Date: 20201008
  Receipt Date: 20201211
  Transmission Date: 20210114
  Serious: Yes (Hospitalization)
  Sender: FDA-Public Use
  Company Number: US-TEVA-2020-US-1831501

PATIENT
  Age: 43 Year
  Sex: Female

DRUGS (9)
  1. AJOVY [Suspect]
     Active Substance: FREMANEZUMAB-VFRM
  2. ELETRIPTAN. [Concomitant]
     Active Substance: ELETRIPTAN
  3. TYLENOL [Concomitant]
     Active Substance: ACETAMINOPHEN
  4. BACLOFEN. [Concomitant]
     Active Substance: BACLOFEN
  5. GABAPENTIN. [Concomitant]
     Active Substance: GABAPENTIN
  6. UBRELVY [Concomitant]
     Active Substance: UBROGEPANT
  7. SUMATRIPTAN. [Concomitant]
     Active Substance: SUMATRIPTAN
  8. AJOVY [Suspect]
     Active Substance: FREMANEZUMAB-VFRM
     Indication: MIGRAINE
     Route: 065
     Dates: start: 20200701, end: 202008
  9. ADVIL [Concomitant]
     Active Substance: IBUPROFEN

REACTIONS (1)
  - Liver function test increased [Unknown]

NARRATIVE: CASE EVENT DATE: 202009
